FAERS Safety Report 9591434 (Version 2)
Quarter: 2013Q4

REPORT INFORMATION
  Report Type: Spontaneous
  Country: US (occurrence: US)
  Receive Date: 20131003
  Receipt Date: 20131003
  Transmission Date: 20140711
  Serious: No
  Sender: FDA-Public Use
  Company Number: US-AMGEN-USASP2012069143

PATIENT
  Age: 46 Year
  Sex: Female
  Weight: 65.31 kg

DRUGS (9)
  1. ENBREL [Suspect]
     Indication: PSORIATIC ARTHROPATHY
     Dosage: 50 MG, QWK
     Route: 058
     Dates: start: 20120718
  2. ENBREL [Suspect]
     Indication: PSORIASIS
  3. GEMFIBROZIL [Concomitant]
     Dosage: 600 MG, UNK
     Route: 048
  4. ALPRAZOLAM [Concomitant]
     Dosage: UNK
  5. BIOTIN [Concomitant]
     Dosage: UNK
  6. METFORMIN                          /00082702/ [Concomitant]
     Dosage: UNK
  7. OMEPRAZOLE [Concomitant]
     Dosage: UNK
  8. MELOXICAM [Concomitant]
     Dosage: 1 TABLET DAILY WITH FOOD
     Route: 048
  9. MOTRIN [Concomitant]
     Dosage: UNK

REACTIONS (16)
  - Arthralgia [Not Recovered/Not Resolved]
  - Fatigue [Not Recovered/Not Resolved]
  - Joint swelling [Not Recovered/Not Resolved]
  - Mobility decreased [Not Recovered/Not Resolved]
  - Skin haemorrhage [Not Recovered/Not Resolved]
  - Neck pain [Not Recovered/Not Resolved]
  - Blood glucose increased [Recovered/Resolved]
  - Laceration [Not Recovered/Not Resolved]
  - Reflexes abnormal [Not Recovered/Not Resolved]
  - Musculoskeletal discomfort [Not Recovered/Not Resolved]
  - Pain [Unknown]
  - Intervertebral disc degeneration [Unknown]
  - Antinuclear antibody positive [Unknown]
  - Psoriasis [Not Recovered/Not Resolved]
  - Injection site pain [Recovered/Resolved]
  - Drug ineffective [Unknown]
